FAERS Safety Report 18444731 (Version 1)
Quarter: 2020Q4

REPORT INFORMATION
  Report Type: Other
  Country: SE (occurrence: SE)
  Receive Date: 20201030
  Receipt Date: 20201030
  Transmission Date: 20210114
  Serious: Yes (Other)
  Sender: FDA-Public Use
  Company Number: SE-ASTELLAS-2020US037426

PATIENT
  Age: 76 Year
  Sex: Female

DRUGS (1)
  1. BETMIGA [Suspect]
     Active Substance: MIRABEGRON
     Indication: PRODUCT USED FOR UNKNOWN INDICATION
     Dosage: UNK UNK, UNKNOWN FREQ. (TOOK 25 TABLETS)
     Route: 065
     Dates: start: 20200810

REACTIONS (5)
  - Rash pruritic [Recovered/Resolved]
  - Dizziness [Not Recovered/Not Resolved]
  - Malaise [Not Recovered/Not Resolved]
  - Eye swelling [Recovered/Resolved]
  - Lip swelling [Recovered/Resolved]

NARRATIVE: CASE EVENT DATE: 2020
